FAERS Safety Report 9101516 (Version 1)
Quarter: 2013Q1

REPORT INFORMATION
  Report Type: Report from Study
  Country: US (occurrence: US)
  Receive Date: 20130218
  Receipt Date: 20130218
  Transmission Date: 20140127
  Serious: No
  Sender: FDA-Public Use
  Company Number: US-ABBOTT-12P-163-0962344-00

PATIENT
  Sex: Female
  Weight: 90.8 kg

DRUGS (2)
  1. SIMCOR 500MG/20MG [Suspect]
     Indication: BLOOD CHOLESTEROL INCREASED
     Dates: start: 201207
  2. OTHER UNKNOWN MEDICATIONS [Concomitant]
     Indication: PRODUCT USED FOR UNKNOWN INDICATION

REACTIONS (5)
  - Rectal tenesmus [Not Recovered/Not Resolved]
  - Faeces hard [Unknown]
  - Painful defaecation [Unknown]
  - Gastrointestinal motility disorder [Unknown]
  - Faeces discoloured [Unknown]
